FAERS Safety Report 9781386 (Version 2)
Quarter: 2014Q1

REPORT INFORMATION
  Report Type: Report from Study
  Country: IE (occurrence: IE)
  Receive Date: 20131224
  Receipt Date: 20140115
  Transmission Date: 20141002
  Serious: Yes (Death, Other)
  Sender: FDA-Public Use
  Company Number: IE-ROCHE-1320836

PATIENT
  Sex: Female

DRUGS (7)
  1. TRASTUZUMAB EMTANSINE [Suspect]
     Indication: BREAST CANCER METASTATIC
     Route: 042
     Dates: start: 20131009, end: 20131120
  2. MST CONTINUS [Concomitant]
  3. LORAZEPAM [Concomitant]
  4. CYCLIZINE [Concomitant]
  5. OMEPRAZOLE [Concomitant]
  6. METHYLPHENIDATE [Concomitant]
  7. DEXAMETHASONE [Concomitant]

REACTIONS (2)
  - Fall [Unknown]
  - Death [Fatal]
